FAERS Safety Report 5572626-3 (Version None)
Quarter: 2007Q4

REPORT INFORMATION
  Report Type: 
  Country: None (occurrence: None)
  Receive Date: 20071130
  Receipt Date: 20061103
  Transmission Date: 20080405
  Serious: Yes (Other)
  Sender: FDA-Public Use
  Company Number: WAES 0601USA01872

PATIENT
  Age: 80 Year
  Sex: Female

DRUGS (6)
  1. FOSAMAX [Suspect]
     Indication: OSTEOPOROSIS
     Dosage: 70 MG WKY PO
     Route: 048
     Dates: start: 20020101, end: 20050701
  2. NEURONTIN [Concomitant]
  3. TIMOPTIC [Concomitant]
  4. TRUSOPT [Concomitant]
  5. ZOLOFT [Concomitant]
  6. VERAPAMIL [Concomitant]

REACTIONS (3)
  - OSTEONECROSIS [None]
  - SARCOIDOSIS [None]
  - TOOTH DISORDER [None]
